FAERS Safety Report 4869685-X (Version None)
Quarter: 2005Q4

REPORT INFORMATION
  Report Type: 
  Country: None (occurrence: None)
  Receive Date: 20051223
  Receipt Date: 20051213
  Transmission Date: 20060501
  Serious: Yes (Other)
  Sender: FDA-Public Use
  Company Number: HQWYE28705DEC05

PATIENT
  Age: 59 Year
  Sex: Male

DRUGS (10)
  1. RAPAMUNE [Suspect]
     Indication: PROPHYLAXIS AGAINST TRANSPLANT REJECTION
     Dosage: 2 MG 1X PER 1 DAY; 3 MG 1X PER 1 DAY
     Route: 048
     Dates: start: 20040707, end: 20040725
  2. RAPAMUNE [Suspect]
     Indication: PROPHYLAXIS AGAINST TRANSPLANT REJECTION
     Dosage: 2 MG 1X PER 1 DAY; 3 MG 1X PER 1 DAY
     Route: 048
     Dates: start: 20040726
  3. CYCLOSPORINE [Concomitant]
  4. PREDNISONE [Concomitant]
  5. SULFAMETHOXAZOLE + TRIMETHOPRIM [Concomitant]
  6. PROPANOLOL (PROPANOLOL) [Concomitant]
  7. NISTATIN (NYSTATIN) [Concomitant]
  8. AMLODIPINE [Concomitant]
  9. RANITIDINE [Concomitant]
  10. ASPIRIN [Concomitant]

REACTIONS (1)
  - BLOOD CREATININE INCREASED [None]
